FAERS Safety Report 12161728 (Version 2)
Quarter: 2016Q2

REPORT INFORMATION
  Report Type: Spontaneous
  Country: US (occurrence: US)
  Receive Date: 20160309
  Receipt Date: 20160422
  Transmission Date: 20160815
  Serious: Yes (Hospitalization)
  Sender: FDA-Public Use
  Company Number: US-ROCHE-1721870

PATIENT
  Sex: Female

DRUGS (3)
  1. PERJETA [Suspect]
     Active Substance: PERTUZUMAB
     Indication: BREAST CANCER
     Route: 058
     Dates: start: 20150130
  2. TAXOTERE [Concomitant]
     Active Substance: DOCETAXEL
  3. XGEVA [Concomitant]
     Active Substance: DENOSUMAB

REACTIONS (2)
  - Off label use [Unknown]
  - Ulcer haemorrhage [Unknown]
